FAERS Safety Report 26157873 (Version 1)
Quarter: 2025Q4

REPORT INFORMATION
  Report Type: Spontaneous
  Country: EU (occurrence: EU)
  Receive Date: 20251215
  Receipt Date: 20251215
  Transmission Date: 20260118
  Serious: Yes (Hospitalization)
  Sender: MYLAN
  Company Number: None

PATIENT
  Age: 81 Year
  Sex: Male
  Weight: 60 kg

DRUGS (12)
  1. METFORMIN [Interacting]
     Active Substance: METFORMIN HYDROCHLORIDE
     Indication: Type 2 diabetes mellitus
     Dosage: 1000 MILLIGRAM, BID (2 GRAM, QD, 1000 MG MORNING AND EVENING)
     Route: 061
     Dates: end: 20201203
  2. METFORMIN [Interacting]
     Active Substance: METFORMIN HYDROCHLORIDE
     Dosage: 1000 MILLIGRAM, BID (2 GRAM, QD, 1000 MG MORNING AND EVENING)
     Route: 048
     Dates: end: 20201203
  3. METFORMIN [Interacting]
     Active Substance: METFORMIN HYDROCHLORIDE
     Dosage: 1000 MILLIGRAM, BID (2 GRAM, QD, 1000 MG MORNING AND EVENING)
     Route: 048
     Dates: end: 20201203
  4. METFORMIN [Interacting]
     Active Substance: METFORMIN HYDROCHLORIDE
     Dosage: 1000 MILLIGRAM, BID (2 GRAM, QD, 1000 MG MORNING AND EVENING)
     Route: 061
     Dates: end: 20201203
  5. KETOPROFEN [Interacting]
     Active Substance: KETOPROFEN
     Indication: Pain
     Dosage: 100 MILLIGRAM, BID (200 MILLIGRAM, QD, 100 MG MORNING AND EVENING)
     Route: 061
     Dates: start: 20201127
  6. KETOPROFEN [Interacting]
     Active Substance: KETOPROFEN
     Dosage: 100 MILLIGRAM, BID (200 MILLIGRAM, QD, 100 MG MORNING AND EVENING)
     Route: 048
     Dates: start: 20201127
  7. KETOPROFEN [Interacting]
     Active Substance: KETOPROFEN
     Dosage: 100 MILLIGRAM, BID (200 MILLIGRAM, QD, 100 MG MORNING AND EVENING)
     Route: 048
     Dates: start: 20201127
  8. KETOPROFEN [Interacting]
     Active Substance: KETOPROFEN
     Dosage: 100 MILLIGRAM, BID (200 MILLIGRAM, QD, 100 MG MORNING AND EVENING)
     Route: 061
     Dates: start: 20201127
  9. TRANDOLAPRIL [Concomitant]
     Active Substance: TRANDOLAPRIL
     Dosage: UNK
  10. TRANDOLAPRIL [Concomitant]
     Active Substance: TRANDOLAPRIL
     Dosage: UNK
     Route: 065
  11. TRANDOLAPRIL [Concomitant]
     Active Substance: TRANDOLAPRIL
     Dosage: UNK
     Route: 065
  12. TRANDOLAPRIL [Concomitant]
     Active Substance: TRANDOLAPRIL
     Dosage: UNK

REACTIONS (3)
  - Lactic acidosis [Recovered/Resolved]
  - Drug level above therapeutic [Recovered/Resolved]
  - Drug interaction [Recovered/Resolved]

NARRATIVE: CASE EVENT DATE: 20201203
